FAERS Safety Report 16990740 (Version 1)
Quarter: 2019Q4

REPORT INFORMATION
  Report Type: Spontaneous
  Country: CH (occurrence: CH)
  Receive Date: 20191104
  Receipt Date: 20191104
  Transmission Date: 20200122
  Serious: Yes (Hospitalization, Other)
  Sender: FDA-Public Use
  Company Number: CH-PFIZER INC-2019471043

PATIENT
  Age: 82 Year
  Sex: Female
  Weight: 50 kg

DRUGS (3)
  1. DALACIN T [Suspect]
     Active Substance: CLINDAMYCIN PHOSPHATE
     Indication: ABSCESS
  2. POVIDONE-IODINE. [Suspect]
     Active Substance: POVIDONE-IODINE
     Indication: ABSCESS
  3. CO-AMOXICILLIN [Suspect]
     Active Substance: AMOXICILLIN\CLAVULANATE POTASSIUM
     Indication: ABSCESS
     Dates: start: 20191008, end: 20191009

REACTIONS (1)
  - Upper airway obstruction [Unknown]

NARRATIVE: CASE EVENT DATE: 20191009
